FAERS Safety Report 5050641-6 (Version None)
Quarter: 2006Q3

REPORT INFORMATION
  Report Type: 
  Country: None (occurrence: None)
  Receive Date: 20060710
  Receipt Date: 20060627
  Transmission Date: 20061208
  Serious: Yes (Other)
  Sender: FDA-Public Use
  Company Number: JP-2006-016554

PATIENT
  Age: 61 Year
  Sex: Male
  Weight: 62 kg

DRUGS (2)
  1. MAGNEVIST [Suspect]
     Indication: NUCLEAR MAGNETIC RESONANCE IMAGING
     Dosage: 10 ML, 0.67 ML/SEC, INTRAVENOUS
     Route: 042
     Dates: start: 20060405, end: 20060405
  2. AMARYL [Concomitant]

REACTIONS (4)
  - CONDITION AGGRAVATED [None]
  - CSF TEST ABNORMAL [None]
  - DELIRIUM [None]
  - RESPIRATORY DISORDER [None]
